FAERS Safety Report 11778222 (Version 2)
Quarter: 2016Q1

REPORT INFORMATION
  Report Type: Spontaneous
  Country: IT (occurrence: IT)
  Receive Date: 20151125
  Receipt Date: 20160129
  Transmission Date: 20160525
  Serious: Yes (Hospitalization)
  Sender: FDA-Public Use
  Company Number: IT-TEVA-610919ACC

PATIENT
  Age: 67 Year
  Sex: Male
  Weight: 89 kg

DRUGS (2)
  1. IRINOTECAN MYLAN GENERICS [Suspect]
     Active Substance: IRINOTECAN
     Indication: COLORECTAL CANCER
     Dosage: 340 MG CYCLICAL
     Route: 042
     Dates: start: 20151014
  2. FLUOROURACILE TEVA - 1 G/20 ML SOLUZIONE PER INFUSIONE [Suspect]
     Active Substance: FLUOROURACIL
     Indication: COLORECTAL CANCER
     Dosage: 750 MG CYCLICAL; FORM STRENGTH: 1 G/20 ML
     Route: 042
     Dates: start: 20151014, end: 20151015

REACTIONS (3)
  - Dehydration [Recovering/Resolving]
  - Diarrhoea [Recovering/Resolving]
  - Asthenia [Recovering/Resolving]

NARRATIVE: CASE EVENT DATE: 20151021
